FAERS Safety Report 13926319 (Version 1)
Quarter: 2017Q3

REPORT INFORMATION
  Report Type: Spontaneous
  Country: US (occurrence: US)
  Receive Date: 20170831
  Receipt Date: 20170831
  Transmission Date: 20171127
  Serious: Yes (Death, Other)
  Sender: FDA-Public Use
  Company Number: US-CELGENEUS-163-21880-12121265

PATIENT

DRUGS (2)
  1. REVLIMID [Suspect]
     Active Substance: LENALIDOMIDE
     Indication: NON-HODGKIN^S LYMPHOMA
     Dosage: 20 MILLIGRAM
     Route: 048
  2. RITUXIMAB. [Suspect]
     Active Substance: RITUXIMAB
     Indication: NON-HODGKIN^S LYMPHOMA
     Dosage: 375 MILLIGRAM/SQ. METER
     Route: 065

REACTIONS (10)
  - Myalgia [Unknown]
  - Skin cancer [Unknown]
  - Neutropenia [Unknown]
  - Rash [Unknown]
  - Thrombocytopenia [Unknown]
  - Thrombosis [Unknown]
  - Fatigue [Unknown]
  - Febrile neutropenia [Unknown]
  - Death [Fatal]
  - Lymphoma transformation [Unknown]
